FAERS Safety Report 5209424-6 (Version None)
Quarter: 2007Q1

REPORT INFORMATION
  Report Type: 
  Country: None (occurrence: None)
  Receive Date: 20070116
  Receipt Date: 20070103
  Transmission Date: 20070707
  Serious: Yes (Other)
  Sender: FDA-Public Use
  Company Number: FR-ELI_LILLY_AND_COMPANY-FR200701000820

PATIENT
  Age: 48 Year
  Sex: Female

DRUGS (4)
  1. FORTEO [Suspect]
     Indication: OSTEOPOROSIS
     Dosage: 20 UG, DAILY (1/D)
     Route: 058
     Dates: start: 20050516
  2. OROCAL D(3) /MON/ [Concomitant]
     Indication: OSTEOPOROSIS
     Dosage: 1 D/F, DAILY (1/D)
     Dates: start: 19960101
  3. CORTANCYL                               /FRA/ [Concomitant]
     Indication: UVEITIS
     Dosage: 22 MG, DAILY (1/D)
     Dates: start: 19920101
  4. CELLCEPT                                /USA/ [Concomitant]
     Indication: EYE DISORDER

REACTIONS (1)
  - MACULAR RUPTURE [None]
